FAERS Safety Report 15422734 (Version 2)
Quarter: 2018Q4

REPORT INFORMATION
  Report Type: Spontaneous
  Country: US (occurrence: US)
  Receive Date: 20180925
  Receipt Date: 20181007
  Transmission Date: 20190204
  Serious: No
  Sender: FDA-Public Use
  Company Number: US-JNJFOC-20180839701

PATIENT
  Sex: Female

DRUGS (2)
  1. WOMENS ROGAINE UNSCENTED [Suspect]
     Active Substance: MINOXIDIL
     Route: 061
  2. WOMENS ROGAINE UNSCENTED [Suspect]
     Active Substance: MINOXIDIL
     Indication: ALOPECIA
     Dosage: BETWEEN 1/2 CAP AND 1 CAP
     Route: 061

REACTIONS (4)
  - Product storage error [Unknown]
  - Overdose [Unknown]
  - Wrong technique in product usage process [Unknown]
  - Hair growth abnormal [Not Recovered/Not Resolved]
